FAERS Safety Report 5524885-0 (Version None)
Quarter: 2007Q4

REPORT INFORMATION
  Report Type: 
  Country: None (occurrence: None)
  Receive Date: 20071119
  Receipt Date: 20071107
  Transmission Date: 20080405
  Serious: No
  Sender: FDA-Public Use
  Company Number: 2007-167205-NL

PATIENT
  Age: 50 Year
  Sex: Female

DRUGS (3)
  1. MIRTAZAPINE [Suspect]
     Indication: DEPRESSION
     Dosage: 30 MG/15 MG  ORAL
     Route: 048
     Dates: start: 20061101
  2. TIBOLONE [Concomitant]
  3. ROSUVASTATIN [Concomitant]

REACTIONS (2)
  - ELECTROCARDIOGRAM QT PROLONGED [None]
  - OEDEMA PERIPHERAL [None]
